APPROVED DRUG PRODUCT: DOXEPIN HYDROCHLORIDE
Active Ingredient: DOXEPIN HYDROCHLORIDE
Strength: EQ 100MG BASE
Dosage Form/Route: CAPSULE;ORAL
Application: A215710 | Product #005 | TE Code: AB
Applicant: MANKIND PHARMA LTD
Approved: Feb 9, 2022 | RLD: No | RS: No | Type: RX